FAERS Safety Report 9004812 (Version 1)
Quarter: 2013Q1

REPORT INFORMATION
  Report Type: Spontaneous
  Country: US (occurrence: None)
  Receive Date: 20130107
  Receipt Date: 20130107
  Transmission Date: 20140127
  Serious: Yes (Other)
  Sender: FDA-Public Use
  Company Number: None

PATIENT
  Age: 15 Year
  Sex: Male
  Weight: 108.86 kg

DRUGS (2)
  1. RISPERDAL [Suspect]
     Indication: SCHIZOPHRENIA
     Dosage: 3 TABLETS DAILY ORAL
     Route: 048
  2. RISPERIDONE [Suspect]
     Dosage: 3 TABLETS DAILY ORAL
     Route: 048

REACTIONS (5)
  - Gynaecomastia [None]
  - Galactorrhoea [None]
  - Chest pain [None]
  - Tremor [None]
  - Depression [None]
